FAERS Safety Report 12261745 (Version 4)
Quarter: 2016Q3

REPORT INFORMATION
  Report Type: Report from Study
  Country: US (occurrence: US)
  Receive Date: 20160413
  Receipt Date: 20160815
  Transmission Date: 20161109
  Serious: Yes (Other)
  Sender: FDA-Public Use
  Company Number: PHEH2016US008954

PATIENT
  Age: 69 Year
  Sex: Female

DRUGS (4)
  1. EXTAVIA [Suspect]
     Active Substance: INTERFERON BETA-1B
     Dosage: WEEK 5-6, 0.1875 MG, (0.75 ML), QOD
     Route: 058
  2. EXTAVIA [Suspect]
     Active Substance: INTERFERON BETA-1B
     Indication: MULTIPLE SCLEROSIS
     Dosage: WEEKS 1-2: 0.0625 MG (0.25 ML), QOD
     Route: 058
     Dates: start: 20160404
  3. EXTAVIA [Suspect]
     Active Substance: INTERFERON BETA-1B
     Dosage: WEEKS 7+: 0.25 MG, QOD
     Route: 058
     Dates: end: 20160803
  4. EXTAVIA [Suspect]
     Active Substance: INTERFERON BETA-1B
     Dosage: WEEK 3-4, 0.125 MG, (0.5 ML), QOD
     Route: 058

REACTIONS (18)
  - Cardiomyopathy [Unknown]
  - Gait disturbance [Unknown]
  - Electrocardiogram abnormal [Unknown]
  - Diarrhoea [Recovered/Resolved]
  - Tinnitus [Recovered/Resolved]
  - Pallor [Recovered/Resolved]
  - Hypertension [Unknown]
  - Influenza like illness [Unknown]
  - Influenza like illness [Recovered/Resolved]
  - Pain [Unknown]
  - Palpitations [Unknown]
  - Nausea [Recovered/Resolved]
  - Insomnia [Unknown]
  - Chest discomfort [Unknown]
  - Asthenia [Recovered/Resolved]
  - Myocardial infarction [Unknown]
  - Coronary artery disease [Unknown]
  - Dizziness [Recovered/Resolved]

NARRATIVE: CASE EVENT DATE: 20160404
